FAERS Safety Report 4954410-4 (Version None)
Quarter: 2006Q1

REPORT INFORMATION
  Report Type: 
  Country: None (occurrence: None)
  Receive Date: 20060327
  Receipt Date: 20060212
  Transmission Date: 20060701
  Serious: Yes (Other)
  Sender: FDA-Public Use
  Company Number: US-ROCHE-436384

PATIENT
  Age: 57 Year
  Sex: Male

DRUGS (2)
  1. PEGASYS [Suspect]
     Route: 058
     Dates: start: 20050509, end: 20060212
  2. COPEGUS [Suspect]
     Route: 048
     Dates: start: 20050509, end: 20060212

REACTIONS (15)
  - ANAEMIA [None]
  - ARTHRALGIA [None]
  - BRONCHIAL OBSTRUCTION [None]
  - CHROMATURIA [None]
  - COUGH [None]
  - DIARRHOEA [None]
  - DYSPEPSIA [None]
  - FATIGUE [None]
  - INFLUENZA LIKE ILLNESS [None]
  - NAUSEA [None]
  - PITTING OEDEMA [None]
  - PRURITUS [None]
  - PULMONARY OEDEMA [None]
  - RASH [None]
  - SKIN HAEMORRHAGE [None]
